FAERS Safety Report 18924264 (Version 5)
Quarter: 2023Q2

REPORT INFORMATION
  Report Type: Spontaneous
  Country: US (occurrence: US)
  Receive Date: 20210222
  Receipt Date: 20230622
  Transmission Date: 20230722
  Serious: Yes (Hospitalization, Other)
  Sender: FDA-Public Use
  Company Number: US-PFIZER INC-2019458648

PATIENT
  Age: 62 Year
  Sex: Female

DRUGS (1)
  1. XELJANZ [Suspect]
     Active Substance: TOFACITINIB CITRATE
     Dosage: 5 MG, 2X/DAY

REACTIONS (7)
  - Knee arthroplasty [Unknown]
  - Nephrolithiasis [Unknown]
  - Kidney infection [Unknown]
  - Sepsis [Unknown]
  - Disease complication [Unknown]
  - Intestinal obstruction [Unknown]
  - Feeling abnormal [Unknown]

NARRATIVE: CASE EVENT DATE: 20190101
